FAERS Safety Report 6011799-5 (Version None)
Quarter: 2008Q4

REPORT INFORMATION
  Report Type: 
  Country: None (occurrence: None)
  Receive Date: 20081218
  Receipt Date: 20080702
  Transmission Date: 20090506
  Serious: No
  Sender: FDA-Public Use
  Company Number: US-ABBOTT-08P-163-0460495-00

PATIENT
  Sex: Female
  Weight: 83.99 kg

DRUGS (6)
  1. MERIDIA [Suspect]
     Indication: WEIGHT CONTROL
     Route: 048
     Dates: start: 20080320, end: 20080622
  2. MERIDIA [Suspect]
     Route: 048
     Dates: start: 20070201, end: 20071201
  3. MERIDIA [Suspect]
     Route: 048
     Dates: start: 20080101, end: 20080310
  4. MERIDIA [Suspect]
     Route: 048
     Dates: start: 20080630
  5. RABEPRAZOLE SODIUM [Concomitant]
     Indication: ANTACID THERAPY
     Route: 048
  6. YAZ [Concomitant]
     Indication: CONTRACEPTION
     Route: 048

REACTIONS (1)
  - DRUG INEFFECTIVE [None]
